FAERS Safety Report 5915430-6 (Version None)
Quarter: 2008Q4

REPORT INFORMATION
  Report Type: 
  Country: None (occurrence: None)
  Receive Date: 20081010
  Receipt Date: 20080929
  Transmission Date: 20090506
  Serious: Yes (Hospitalization, Disabling)
  Sender: FDA-Public Use
  Company Number: DE-PFIZER INC-2008042971

PATIENT
  Sex: Female

DRUGS (5)
  1. AROMASIN [Suspect]
     Indication: BREAST CANCER
     Route: 048
     Dates: start: 20071001, end: 20080401
  2. EPIRUBICIN [Suspect]
     Indication: BREAST CANCER
     Route: 042
     Dates: end: 20050101
  3. FLUOROURACIL [Suspect]
     Indication: BREAST CANCER
     Route: 042
  4. CYCLOPHOSPHAMIDE [Suspect]
     Indication: BREAST CANCER
     Route: 042
  5. TAMOXIFEN CITRATE [Concomitant]
     Dates: start: 20050101, end: 20071001

REACTIONS (1)
  - LEFT VENTRICULAR FAILURE [None]
